FAERS Safety Report 14073219 (Version 1)
Quarter: 2017Q4

REPORT INFORMATION
  Report Type: Spontaneous
  Country: US (occurrence: US)
  Receive Date: 20171010
  Receipt Date: 20171010
  Transmission Date: 20180321
  Serious: No
  Sender: FDA-Public Use
  Company Number: US-JNJFOC-20170802317

PATIENT
  Age: 7 Month
  Sex: Male
  Weight: 10.89 kg

DRUGS (1)
  1. INFANTS TYLENOL [Suspect]
     Active Substance: ACETAMINOPHEN
     Indication: TEETHING
     Dosage: 1.25 - 3.75 ML
     Route: 048
     Dates: start: 20170616, end: 20170801

REACTIONS (3)
  - Inappropriate schedule of drug administration [Unknown]
  - Expired product administered [Unknown]
  - Off label use [Unknown]
